FAERS Safety Report 8905889 (Version 7)
Quarter: 2013Q1

REPORT INFORMATION
  Report Type: Spontaneous
  Country: US (occurrence: US)
  Receive Date: 20121109
  Receipt Date: 20130326
  Transmission Date: 20140127
  Serious: Yes (Hospitalization, Disabling, Other)
  Sender: FDA-Public Use
  Company Number: US-009507513-1205USA04998

PATIENT
  Sex: Female
  Weight: 62.59 kg

DRUGS (9)
  1. FOSAMAX [Suspect]
     Indication: OSTEOPENIA
     Dosage: 5 MG, QD
     Route: 048
     Dates: start: 200012, end: 20020830
  2. FOSAMAX [Suspect]
     Indication: OSTEOPOROSIS
     Dosage: 70 MG, QW
     Route: 048
     Dates: end: 200802
  3. ALENDRONATE SODIUM [Suspect]
     Indication: OSTEOPENIA
     Dosage: 70 MG, QW
     Dates: start: 200802, end: 201202
  4. ALENDRONATE SODIUM [Suspect]
     Indication: OSTEOPOROSIS
  5. VITAMINS (UNSPECIFIED) [Concomitant]
     Dosage: UNK
     Dates: start: 1950
  6. CALCIUM (UNSPECIFIED) [Concomitant]
     Indication: OSTEOPENIA
     Dosage: 1200 MG, UNK
     Dates: start: 1950
  7. PREMARIN [Concomitant]
     Indication: HORMONE THERAPY
     Dosage: 0.3-1.25 MG
     Dates: start: 1980
  8. ATENOLOL [Concomitant]
     Indication: HYPERTENSION
     Dosage: 12.5 MG, QD
  9. NAPROXEN [Concomitant]

REACTIONS (39)
  - Femur fracture [Unknown]
  - Internal fixation of fracture [Unknown]
  - Osteoporosis [Unknown]
  - Stress fracture [Unknown]
  - Femur fracture [Unknown]
  - Fall [Unknown]
  - Coronary artery bypass [Unknown]
  - Arteriosclerosis coronary artery [Unknown]
  - Adverse drug reaction [Unknown]
  - Myocardial infarction [Unknown]
  - Acute coronary syndrome [Unknown]
  - Hypokalaemia [Unknown]
  - Squamous cell carcinoma [Unknown]
  - Skin graft [Unknown]
  - Hyperlipidaemia [Unknown]
  - Coronary artery disease [Unknown]
  - Headache [Unknown]
  - Scoliosis [Unknown]
  - Spinal compression fracture [Not Recovered/Not Resolved]
  - Cataract operation [Unknown]
  - Nerve injury [Unknown]
  - Artery dissection [Unknown]
  - Tendon sheath lesion excision [Unknown]
  - Anxiety [Unknown]
  - Restless legs syndrome [Unknown]
  - Kyphosis [Unknown]
  - Dyspnoea exertional [Unknown]
  - Fatigue [Unknown]
  - Fall [Unknown]
  - Laceration [Unknown]
  - Musculoskeletal stiffness [Unknown]
  - Cerebral small vessel ischaemic disease [Not Recovered/Not Resolved]
  - Chronic sinusitis [Not Recovered/Not Resolved]
  - Mass [Unknown]
  - Haematoma [Unknown]
  - Osteoarthritis [Unknown]
  - Neck pain [Unknown]
  - Arthralgia [Unknown]
  - Drug hypersensitivity [Unknown]
